FAERS Safety Report 5208073-3 (Version None)
Quarter: 2006Q4

REPORT INFORMATION
  Report Type: 
  Country: None (occurrence: None)
  Receive Date: 20061027
  Receipt Date: 20060601
  Transmission Date: 20070319
  Serious: Yes (Disabling, Other)
  Sender: FDA-Public Use
  Company Number: 200613818US

PATIENT
  Age: 38 Year
  Sex: Female
  Weight: 68.18 kg

DRUGS (3)
  1. KETEK [Suspect]
     Indication: SINUSITIS
     Dosage: 400 MG QD PO
     Route: 048
     Dates: start: 20060401, end: 20060419
  2. PANTOPRAZOLE SODIUM [Concomitant]
  3. TEGASEROD [Concomitant]

REACTIONS (3)
  - DIPLOPIA [None]
  - READING DISORDER [None]
  - VISION BLURRED [None]
